FAERS Safety Report 23221971 (Version 1)
Quarter: 2023Q4

REPORT INFORMATION
  Report Type: Spontaneous
  Country: CN (occurrence: CN)
  Receive Date: 20231123
  Receipt Date: 20231123
  Transmission Date: 20240110
  Serious: Yes (Life-Threatening, Other)
  Sender: FDA-Public Use
  Company Number: None

PATIENT
  Age: 65 Year
  Sex: Male
  Weight: 81 kg

DRUGS (6)
  1. CYCLOPHOSPHAMIDE [Suspect]
     Active Substance: CYCLOPHOSPHAMIDE
     Indication: Chemotherapy
     Dosage: 1500 MG, ST, D1, DILUTED WITH 100 ML OF 0.9% SODIUM CHLORIDE, SECOND CYCLE OF CHEMOTHERAPY
     Route: 041
     Dates: start: 20231031, end: 20231031
  2. CYCLOPHOSPHAMIDE [Suspect]
     Active Substance: CYCLOPHOSPHAMIDE
     Indication: Follicular lymphoma
  3. SODIUM CHLORIDE [Suspect]
     Active Substance: SODIUM CHLORIDE
     Indication: Medication dilution
     Dosage: (0.9%) 100 ML, ST, D1, USED TO DILUTE 1500 MG CYCLOPHOSPHAMIDE, SECOND CYCLE
     Route: 041
     Dates: start: 20231031, end: 20231031
  4. SODIUM CHLORIDE [Suspect]
     Active Substance: SODIUM CHLORIDE
     Dosage: (0.9%) 20 ML, ST, USED TO DILUTE 2 MG VINCRISTINE SULFATE, SECOND CYCLE
     Route: 041
     Dates: start: 20231031, end: 20231031
  5. VINCRISTINE SULFATE [Suspect]
     Active Substance: VINCRISTINE SULFATE
     Indication: Chemotherapy
     Dosage: 2 MG, ST, DILUTED WITH 20 ML OF 0.9% SODIUM CHLORIDE, SECOND CYCLE
     Route: 041
     Dates: start: 20231031, end: 20231031
  6. VINCRISTINE SULFATE [Suspect]
     Active Substance: VINCRISTINE SULFATE
     Indication: Follicular lymphoma

REACTIONS (1)
  - Liver injury [Recovered/Resolved]

NARRATIVE: CASE EVENT DATE: 20231107
